FAERS Safety Report 22517344 (Version 2)
Quarter: 2023Q2

REPORT INFORMATION
  Report Type: Spontaneous
  Country: US (occurrence: US)
  Receive Date: 20230603
  Receipt Date: 20230609
  Transmission Date: 20230722
  Serious: Yes (Death, Hospitalization)
  Sender: FDA-Public Use
  Company Number: US-Accord-360685

PATIENT
  Sex: Male

DRUGS (3)
  1. METHOTREXATE [Suspect]
     Active Substance: METHOTREXATE
     Indication: Rheumatoid arthritis
     Dosage: 2.5 MG TAKEN ONCE A WEEK ON THURSDAY, TOTAL OF 10 TABLETS FOR 25?MG DOSE
     Dates: start: 202302, end: 202303
  2. SIMVASTATIN [Concomitant]
     Active Substance: SIMVASTATIN
     Dosage: 20MG
  3. SPIRONOLACTONE [Concomitant]
     Active Substance: SPIRONOLACTONE
     Dosage: 50MG

REACTIONS (5)
  - Acute leukaemia [Fatal]
  - Platelet count decreased [Fatal]
  - Rash [Unknown]
  - Amnesia [Unknown]
  - Dyspnoea [Unknown]
